FAERS Safety Report 6537184-5 (Version None)
Quarter: 2010Q1

REPORT INFORMATION
  Report Type: 
  Country: None (occurrence: None)
  Receive Date: 20100114
  Receipt Date: 20100108
  Transmission Date: 20100710
  Serious: Yes (Hospitalization)
  Sender: FDA-Public Use
  Company Number: FR-JNJFOC-20100103381

PATIENT
  Age: 31 Year
  Sex: Female

DRUGS (4)
  1. REMICADE [Suspect]
     Indication: COLITIS ULCERATIVE
     Dosage: HAD RECEIVED 11 INFUSIONS
     Route: 042
  2. YASMINELLE [Concomitant]
     Indication: CONTRACEPTION
  3. IMUREL [Concomitant]
     Indication: COLITIS ULCERATIVE
  4. HYDROCORTISONE [Concomitant]
     Indication: COLITIS ULCERATIVE

REACTIONS (1)
  - CUTANEOUS LUPUS ERYTHEMATOSUS [None]
